FAERS Safety Report 21022167 (Version 6)
Quarter: 2024Q4

REPORT INFORMATION
  Report Type: Report from Study
  Country: GB (occurrence: GB)
  Receive Date: 20220629
  Receipt Date: 20241210
  Transmission Date: 20250115
  Serious: Yes (Death, Hospitalization, Congenital Anomaly, Other)
  Sender: VIIV
  Company Number: None

PATIENT

DRUGS (48)
  1. LAMIVUDINE [Suspect]
     Active Substance: LAMIVUDINE
     Indication: Product used for unknown indication
     Dosage: 300 MG, QD (MATERNAL DOSE: 300 MG ORAL)
     Route: 064
     Dates: start: 20090101, end: 20100610
  2. ZIDOVUDINE [Suspect]
     Active Substance: ZIDOVUDINE
     Indication: Product used for unknown indication
     Dosage: 800 MG, QD
     Route: 064
     Dates: start: 20090110, end: 20100610
  3. ZIDOVUDINE [Suspect]
     Active Substance: ZIDOVUDINE
     Dosage: 800 MG, QD
     Route: 064
     Dates: start: 20100610
  4. ZIDOVUDINE [Suspect]
     Active Substance: ZIDOVUDINE
     Dosage: 600 MG, QD
     Route: 064
  5. ZIDOVUDINE [Suspect]
     Active Substance: ZIDOVUDINE
     Dosage: 600 MG, QD
     Route: 064
     Dates: start: 20090110, end: 20100610
  6. TENOFOVIR DISOPROXIL FUMARATE [Suspect]
     Active Substance: TENOFOVIR DISOPROXIL FUMARATE
     Indication: Product used for unknown indication
     Dosage: 300 MG, QD
     Route: 064
     Dates: start: 20100610
  7. TENOFOVIR DISOPROXIL FUMARATE [Suspect]
     Active Substance: TENOFOVIR DISOPROXIL FUMARATE
     Dosage: 1 DF, QD, MATERNAL DOSE: 1 DOSAGE FORM, QD, ORAL
     Route: 064
  8. VITAMIN B12 [Suspect]
     Active Substance: CYANOCOBALAMIN
     Indication: Product used for unknown indication
     Dosage: UNK (MATERNAL DOSE: UNK)
     Route: 064
     Dates: start: 20100610
  9. FOLATE SODIUM [Suspect]
     Active Substance: FOLATE SODIUM
     Indication: Supplementation therapy
     Dosage: 1 DF, QD
     Route: 064
  10. FOLATE SODIUM [Suspect]
     Active Substance: FOLATE SODIUM
     Indication: Foetal exposure during pregnancy
     Dosage: UNK
     Route: 064
  11. FOLATE SODIUM [Suspect]
     Active Substance: FOLATE SODIUM
     Dosage: UNK
     Route: 064
  12. FOLATE SODIUM [Suspect]
     Active Substance: FOLATE SODIUM
     Dosage: 1 DF, QD
     Route: 064
  13. TRUVADA [Suspect]
     Active Substance: EMTRICITABINE\TENOFOVIR DISOPROXIL FUMARATE
     Indication: HIV infection
     Dosage: 1 DF, QD
     Route: 064
     Dates: start: 20180205
  14. TRUVADA [Suspect]
     Active Substance: EMTRICITABINE\TENOFOVIR DISOPROXIL FUMARATE
     Dosage: 1 DF, QD
     Route: 064
     Dates: start: 20171006, end: 20180205
  15. ISENTRESS [Suspect]
     Active Substance: RALTEGRAVIR POTASSIUM
     Indication: Product used for unknown indication
     Dosage: 800 MG, QID (MATERNAL DOSE: 3200 MG, QD (800 MILLIGRAM, QID))
     Route: 064
     Dates: start: 20100610
  16. NEVIRAPINE [Suspect]
     Active Substance: NEVIRAPINE
     Indication: Product used for unknown indication
     Dosage: 400 MG, QD (MATERNAL DOSE:400 MG, QD)
     Route: 064
     Dates: start: 20090101, end: 20100610
  17. INSULIN ASPART [Suspect]
     Active Substance: INSULIN ASPART
     Indication: Product used for unknown indication
     Dosage: UNK
     Route: 064
  18. METFORMIN [Suspect]
     Active Substance: METFORMIN HYDROCHLORIDE
     Indication: Product used for unknown indication
     Dosage: UNK
     Route: 064
  19. METFORMIN [Suspect]
     Active Substance: METFORMIN HYDROCHLORIDE
     Dosage: 400 MG, QD
     Route: 064
     Dates: start: 20090101, end: 20100610
  20. EMTRICITABINE\TENOFOVIR DISOPROXIL FUMARATE [Suspect]
     Active Substance: EMTRICITABINE\TENOFOVIR DISOPROXIL FUMARATE
     Indication: HIV infection
     Dosage: 1 DF, QD
     Route: 064
     Dates: start: 20171006, end: 20180205
  21. LABETALOL [Suspect]
     Active Substance: LABETALOL
     Indication: Product used for unknown indication
     Dosage: 300 MG
     Route: 064
     Dates: start: 20090101, end: 20100610
  22. LABETALOL [Suspect]
     Active Substance: LABETALOL
     Dosage: UNK
     Route: 064
  23. LABETALOL [Suspect]
     Active Substance: LABETALOL
     Dosage: 300 MG, MATERNAL DOSE: 300 MG)
     Route: 064
  24. KALETRA [Suspect]
     Active Substance: LOPINAVIR\RITONAVIR
     Indication: Product used for unknown indication
     Dosage: UNK (MATERNAL DOSE: UNK)
     Route: 064
     Dates: start: 20100610
  25. EFAVIRENZ [Suspect]
     Active Substance: EFAVIRENZ
     Indication: HIV infection
     Dosage: 1 DF, QD
     Route: 064
     Dates: start: 20171006, end: 20180205
  26. EFAVIRENZ [Suspect]
     Active Substance: EFAVIRENZ
     Dosage: 1 DF, QD
     Route: 064
     Dates: start: 20171006
  27. EFAVIRENZ [Suspect]
     Active Substance: EFAVIRENZ
     Dosage: 1 DF, QD
     Route: 064
  28. LOPINAVIR\RITONAVIR [Suspect]
     Active Substance: LOPINAVIR\RITONAVIR
     Indication: Product used for unknown indication
     Dosage: UNK (MATERNAL DOSE: UNK)
     Route: 064
     Dates: start: 20100610
  29. EFAVIRENZ [Suspect]
     Active Substance: EFAVIRENZ
     Indication: Maternal exposure timing unspecified
     Dosage: 1 DF, QD, (MATERNAL DOSE: 1 DOSAGE FORM, QD (1 TABLET/CAPSULE, DAILY))
     Route: 064
     Dates: start: 20171006, end: 20180205
  30. EFAVIRENZ [Suspect]
     Active Substance: EFAVIRENZ
     Dosage: UNK UNK, QD
     Route: 064
  31. EFAVIRENZ [Suspect]
     Active Substance: EFAVIRENZ
     Dosage: 1 DF, QD, 1 DOSAGE FORM, QD, (MATERNAL DOSE: 1 DOSAGE FORM, QD)
     Route: 064
  32. EFAVIRENZ [Suspect]
     Active Substance: EFAVIRENZ
     Dosage: 1 DF, QD, UNK, (MATERNAL DOSE: 1 DOSAGE FORM, QD (1 TABLET/CAPSULE, DAILY)
     Route: 064
  33. INSULIN ASPART [Suspect]
     Active Substance: INSULIN ASPART
     Indication: Product used for unknown indication
     Dosage: UNK
     Route: 064
  34. COBAMAMIDE [Suspect]
     Active Substance: COBAMAMIDE
     Indication: Product used for unknown indication
     Dosage: UNK
     Route: 065
  35. COBAMAMIDE [Suspect]
     Active Substance: COBAMAMIDE
     Dosage: UNK, (MATERNAL DOSE: UNK)
     Route: 065
  36. EMTRICITABINE [Suspect]
     Active Substance: EMTRICITABINE
     Indication: Product used for unknown indication
     Dosage: 1 DF, QD, 1 DOSAGE FORM, QD, (1 TABLET/CAPSULE, QD)
     Route: 064
     Dates: start: 20180205
  37. EMTRICITABINE [Suspect]
     Active Substance: EMTRICITABINE
     Dosage: 1 DF, QD, 1 DOSAGE FORM, QD, (1 TABLET/CAPSULE, QD)
     Route: 064
     Dates: start: 20171006
  38. EMTRICITABINE [Suspect]
     Active Substance: EMTRICITABINE
     Dosage: 1 DF, QD, 1 DOSAGE FORM, QD, (1 TABLET/CAPSULE, QD)
     Route: 064
  39. EMTRICITABINE [Suspect]
     Active Substance: EMTRICITABINE
     Dosage: 1  DF, QD, 1 DOSAGE FORM, QD, (1 TABLET/CAPSULE, QD)
     Route: 064
  40. EMTRICITABINE [Suspect]
     Active Substance: EMTRICITABINE
     Dosage: 1 DF, QD, 1 DOSAGE FORM, QD, (1 TABLET/CAPSULE, QD)
     Route: 064
  41. LOPINAVIR [Suspect]
     Active Substance: LOPINAVIR
     Indication: Product used for unknown indication
     Dosage: UNK, MATERNAL DOSE: UNK
     Route: 064
     Dates: start: 20100610
  42. RITONAVIR [Suspect]
     Active Substance: RITONAVIR
     Indication: Product used for unknown indication
     Dosage: UNK
     Route: 064
     Dates: start: 20100610
  43. RITONAVIR [Suspect]
     Active Substance: RITONAVIR
     Dosage: UNK
     Route: 064
  44. TENOFOVIR DISOPROXIL [Suspect]
     Active Substance: TENOFOVIR DISOPROXIL
     Indication: Product used for unknown indication
     Dosage: UNK
     Route: 064
     Dates: start: 20180205
  45. TENOFOVIR DISOPROXIL [Suspect]
     Active Substance: TENOFOVIR DISOPROXIL
     Dosage: 300 MG, QD
     Route: 064
     Dates: start: 20100610
  46. TENOFOVIR DISOPROXIL [Suspect]
     Active Substance: TENOFOVIR DISOPROXIL
     Dosage: 300 MG, QD
     Route: 064
  47. TENOFOVIR DISOPROXIL [Suspect]
     Active Substance: TENOFOVIR DISOPROXIL
     Dosage: 1 DF
     Route: 064
  48. TENOFOVIR DISOPROXIL [Suspect]
     Active Substance: TENOFOVIR DISOPROXIL
     Dosage: UNK
     Route: 064

REACTIONS (5)
  - Hydrops foetalis [Fatal]
  - Cleft lip and palate [Fatal]
  - Ultrasound antenatal screen [Fatal]
  - Foetal exposure during pregnancy [Fatal]
  - Trisomy 18 [Fatal]

NARRATIVE: CASE EVENT DATE: 20171006
